FAERS Safety Report 6269122-7 (Version None)
Quarter: 2009Q3

REPORT INFORMATION
  Report Type: 
  Country: None (occurrence: None)
  Receive Date: 20090715
  Receipt Date: 20080805
  Transmission Date: 20100115
  Serious: Yes (Other)
  Sender: FDA-Public Use
  Company Number: US-BRISTOL-MYERS SQUIBB COMPANY-14290266

PATIENT
  Age: 76 Year
  Sex: Male

DRUGS (4)
  1. BLEOMYCIN SULFATE [Suspect]
     Indication: CHEMOTHERAPY
     Dosage: INITALLY TAKEN ON 14-AUG-2007
     Dates: start: 20071120, end: 20071120
  2. NEUPOGEN [Suspect]
     Indication: CHEMOTHERAPY
     Dosage: DOSAGE FORM = MU INITALLY TAKEN ON 09OCT2007 PREFILLED SYRINGE
     Route: 042
     Dates: start: 20071120, end: 20071120
  3. DOXORUBICIN HCL [Concomitant]
     Indication: CHEMOTHERAPY
     Dates: start: 20070801
  4. DEXAMETHASONE [Concomitant]
     Indication: CHEMOTHERAPY
     Dates: start: 20070801

REACTIONS (1)
  - LUNG DISORDER [None]
